FAERS Safety Report 5884393-4 (Version None)
Quarter: 2008Q3

REPORT INFORMATION
  Report Type: 
  Country: None (occurrence: None)
  Receive Date: 20080915
  Receipt Date: 20080903
  Transmission Date: 20090109
  Serious: Yes (Hospitalization, Other)
  Sender: FDA-Public Use
  Company Number: CA-PFIZER INC-2008068462

PATIENT
  Sex: Male
  Weight: 63.5 kg

DRUGS (5)
  1. DILANTIN [Suspect]
     Indication: GRAND MAL CONVULSION
     Route: 048
     Dates: start: 20080701
  2. BACLOFEN [Concomitant]
     Indication: HICCUPS
     Dates: start: 20080729, end: 20080814
  3. RABEPRAZOLE SODIUM [Concomitant]
     Indication: NAUSEA
     Dates: start: 20080730, end: 20080802
  4. DEXAMETHASONE [Concomitant]
     Indication: OEDEMA
     Dates: start: 20080730, end: 20080806
  5. TYLENOL (CAPLET) [Concomitant]
     Indication: HEADACHE
     Dates: start: 20080730

REACTIONS (2)
  - DRUG PRESCRIBING ERROR [None]
  - THERAPEUTIC AGENT TOXICITY [None]
